FAERS Safety Report 4448102-8 (Version None)
Quarter: 2004Q3

REPORT INFORMATION
  Report Type: 
  Country: None (occurrence: None)
  Receive Date: 20040812
  Receipt Date: 20040517
  Transmission Date: 20050211
  Serious: No
  Sender: FDA-Public Use
  Company Number: USA040567706

PATIENT
  Age: 76 Year
  Sex: Male

DRUGS (10)
  1. CIALIS [Suspect]
     Indication: ERECTILE DYSFUNCTION
     Dosage: 20 MG
  2. PLAVIX [Concomitant]
  3. ATENOLOL [Concomitant]
  4. PRANDIN (PRANDIN) [Concomitant]
  5. FLOMAX MR (TAMSULOSIN HYDROCHLORIDE) [Concomitant]
  6. PRILOSEC [Concomitant]
  7. METFORMIN HCL [Concomitant]
  8. TIAZAC [Concomitant]
  9. MULTI-VITAMIN [Concomitant]
  10. TYLENOL [Concomitant]

REACTIONS (1)
  - DRUG INEFFECTIVE [None]
